FAERS Safety Report 9885969 (Version 2)
Quarter: 2014Q1

REPORT INFORMATION
  Report Type: Spontaneous
  Country: JP (occurrence: JP)
  Receive Date: 20140210
  Receipt Date: 20140210
  Transmission Date: 20141002
  Serious: Yes (Other)
  Sender: FDA-Public Use
  Company Number: JP-PFIZER INC-2014026343

PATIENT
  Age: 68 Year
  Sex: Female
  Weight: 34 kg

DRUGS (15)
  1. LIDOCAINE HCL [Suspect]
     Indication: ANAESTHESIA
     Dosage: 2 ML 2%, UNK
  2. LIDOCAINE HCL [Suspect]
     Dosage: 5 ML 1%, UNK
     Route: 008
  3. FENTANYL [Suspect]
     Indication: EPIDURAL ANAESTHESIA
     Dosage: 0.3 MG, UNK
     Route: 042
  4. FENTANYL [Suspect]
     Dosage: 0.1 MG, UNK
     Route: 008
  5. FENTANYL [Suspect]
     Dosage: 18 UG/HR, UNK
     Route: 008
  6. FENTANYL [Suspect]
     Dosage: 12 UG/HR, UNK
     Route: 008
  7. REMIFENTANIL [Suspect]
     Indication: ANAESTHESIA
     Dosage: 0.25 UG/KG/MIN
     Route: 042
  8. REMIFENTANIL [Suspect]
     Dosage: 0.2 UG/KG/MIN
     Route: 042
  9. ROCURONIUM [Suspect]
     Indication: ANAESTHESIA
     Dosage: 30 MG, UNK
  10. ROPIVACAINE [Suspect]
     Indication: ANAESTHESIA
     Dosage: 6 ML/HR 0.2%
     Route: 008
  11. ROPIVACAINE [Suspect]
     Dosage: 4 ML/HR 0.2%
     Route: 008
  12. SEVOFLURANE [Concomitant]
     Indication: ANAESTHESIA
     Dosage: 1-5%, UNK
  13. SEVOFLURANE [Concomitant]
     Dosage: 1.5%, UNK
  14. AMINOPHYLLINE [Concomitant]
     Indication: PROPHYLAXIS
     Dosage: 250 MG, UNK
     Route: 042
  15. OXYGEN [Concomitant]
     Dosage: 6 L/MIN

REACTIONS (4)
  - Drug administration error [Unknown]
  - Apnoea [Recovered/Resolved]
  - Administration related reaction [Unknown]
  - Respiratory depression [Recovered/Resolved]
